FAERS Safety Report 11616338 (Version 2)
Quarter: 2015Q4

REPORT INFORMATION
  Report Type: Report from Study
  Country: US (occurrence: US)
  Receive Date: 20151009
  Receipt Date: 20151027
  Transmission Date: 20160304
  Serious: Yes (Hospitalization)
  Sender: FDA-Public Use
  Company Number: US-ACTELION-A-US2015-120203

PATIENT
  Age: 64 Year
  Sex: Male

DRUGS (12)
  1. VELETRI [Suspect]
     Active Substance: EPOPROSTENOL
     Indication: PULMONARY HYPERTENSION
     Dosage: 26 UNK, UNK
     Route: 042
     Dates: start: 201505
  2. ATORVASTATIN [Concomitant]
     Active Substance: ATORVASTATIN
     Dosage: 10 MG, QD
  3. PANTOPRAZOLE [Concomitant]
     Active Substance: PANTOPRAZOLE SODIUM
     Dosage: 40 MG, QD
  4. SUCRALFATE. [Concomitant]
     Active Substance: SUCRALFATE
     Dosage: UNK, TID
  5. BENZONATATE. [Concomitant]
     Active Substance: BENZONATATE
     Dosage: UNK, TID
  6. BENADRYL [Concomitant]
     Active Substance: DIPHENHYDRAMINE HYDROCHLORIDE
     Dosage: UNK, PRN
  7. IMODIUM [Concomitant]
     Active Substance: LOPERAMIDE HYDROCHLORIDE
     Dosage: UNK, PRN
  8. VELETRI [Suspect]
     Active Substance: EPOPROSTENOL
     Dosage: 22 NG/KG, PER MIN
     Route: 042
     Dates: start: 20150616
  9. IRON COMPLEX [Concomitant]
     Dosage: 325 MG, TID
  10. COUMADIN [Concomitant]
     Active Substance: WARFARIN SODIUM
  11. FLUTICASONE [Concomitant]
     Active Substance: FLUTICASONE\FLUTICASONE PROPIONATE
     Dosage: UNK, BID
  12. RIOCIGUAT [Concomitant]
     Active Substance: RIOCIGUAT

REACTIONS (18)
  - Pulmonary embolism [Unknown]
  - Peptic ulcer [Unknown]
  - Dyspnoea [Unknown]
  - Skin irritation [Unknown]
  - Cardiogenic shock [Unknown]
  - Duodenal ulcer [Unknown]
  - Headache [Unknown]
  - Haemorrhoids [Unknown]
  - Cough [Unknown]
  - Oedema peripheral [Unknown]
  - Right ventricular failure [Unknown]
  - Nasal congestion [Unknown]
  - Rash pruritic [Unknown]
  - Rash papular [Unknown]
  - Rash [Unknown]
  - Incorrect dose administered [Unknown]
  - Fatigue [Unknown]
  - Hypoxia [Unknown]
